FAERS Safety Report 4331680-7 (Version None)
Quarter: 2004Q1

REPORT INFORMATION
  Report Type: 
  Country: None (occurrence: None)
  Receive Date: 20040330
  Receipt Date: 20040115
  Transmission Date: 20041129
  Serious: Yes (Death, Life-Threatening)
  Sender: FDA-Public Use
  Company Number: WAES 0311FRA00059

PATIENT
  Age: 63 Year
  Sex: Female

DRUGS (8)
  1. INJ CASPOFUNGIN ACETATE [Suspect]
     Indication: BRONCHOPULMONARY ASPERGILLOSIS
     Dosage: 70MG/DAILY
     Route: 042
     Dates: start: 20031018, end: 20031119
  2. VORICONAZOLE [Suspect]
     Indication: BRONCHOPULMONARY ASPERGILLOSIS
     Dosage: SEE IMAGE
     Route: 042
     Dates: start: 20031018, end: 20031018
  3. VORICONAZOLE [Suspect]
     Indication: BRONCHOPULMONARY ASPERGILLOSIS
     Dosage: SEE IMAGE
     Route: 042
     Dates: start: 20031019, end: 20031023
  4. VORICONAZOLE [Suspect]
     Indication: BRONCHOPULMONARY ASPERGILLOSIS
     Dosage: PO
     Route: 048
     Dates: start: 20031024, end: 20031119
  5. . [Concomitant]
  6. ACYCLOVIR [Concomitant]
  7. OLFOXACIN [Concomitant]
  8. VANCOMYCIN [Concomitant]

REACTIONS (9)
  - ACUTE RESPIRATORY DISTRESS SYNDROME [None]
  - ASPERGILLOSIS [None]
  - DISEASE PROGRESSION [None]
  - DRUG INEFFECTIVE [None]
  - DYSPHAGIA [None]
  - HAEMOGLOBIN DECREASED [None]
  - PULMONARY ALVEOLAR HAEMORRHAGE [None]
  - PULMONARY OEDEMA [None]
  - THROMBOCYTOPENIA [None]
